FAERS Safety Report 8326955-0 (Version None)
Quarter: 2012Q2

REPORT INFORMATION
  Report Type: 
  Country: None (occurrence: None)
  Receive Date: 20120501
  Receipt Date: 20110929
  Transmission Date: 20120825
  Serious: No
  Sender: FDA-Public Use
  Company Number: US-SANOFI-AVENTIS-2011SA066733

PATIENT
  Sex: Female

DRUGS (3)
  1. APIDRA [Suspect]
     Route: 058
  2. SOLOSTAR [Suspect]
  3. INSULIN DETEMIR [Concomitant]

REACTIONS (4)
  - THERAPEUTIC RESPONSE DECREASED [None]
  - PRODUCT QUALITY ISSUE [None]
  - IMPAIRED GASTRIC EMPTYING [None]
  - THERAPEUTIC RESPONSE DELAYED [None]
